FAERS Safety Report 9405166 (Version 2)
Quarter: 2013Q3

REPORT INFORMATION
  Report Type: Spontaneous
  Country: BR (occurrence: BR)
  Receive Date: 20130717
  Receipt Date: 20130729
  Transmission Date: 20140515
  Serious: Yes (Death)
  Sender: FDA-Public Use
  Company Number: BR-PFIZER INC-2013208490

PATIENT
  Age: 93 Year
  Sex: Female
  Weight: 85 kg

DRUGS (4)
  1. OLMETEC [Suspect]
     Indication: HYPERTENSION
     Dosage: 1 TABLET OF 20 MG, DAILY
     Route: 048
     Dates: start: 20100409
  2. LYRICA [Suspect]
     Indication: PAIN IN EXTREMITY
     Dosage: 2 CAPSULES OF 75 MG, DAILY
     Route: 048
     Dates: start: 20120301
  3. ARTROLIVE [Concomitant]
     Indication: PAIN IN EXTREMITY
     Dosage: 14 DF, DAILY
  4. CALTREN [Concomitant]
     Indication: PAIN IN EXTREMITY
     Dosage: 14 DF, DAILY

REACTIONS (1)
  - Death [Fatal]
